FAERS Safety Report 7202897-9 (Version None)
Quarter: 2010Q4

REPORT INFORMATION
  Report Type: 
  Country: None (occurrence: None)
  Receive Date: 20101229
  Receipt Date: 20101220
  Transmission Date: 20110411
  Serious: Yes (Other)
  Sender: FDA-Public Use
  Company Number: US-PFIZER INC-2010176431

PATIENT
  Sex: Female
  Weight: 102 kg

DRUGS (4)
  1. XALATAN [Suspect]
     Indication: INTRAOCULAR PRESSURE INCREASED
     Dosage: UNK TWICE DAILY IN BOTH EYES
     Dates: end: 20100701
  2. TIMOPTIC [Suspect]
     Indication: INTRAOCULAR PRESSURE INCREASED
     Dosage: UNK
     Dates: start: 20100701
  3. TRUSOPT [Suspect]
     Indication: INTRAOCULAR PRESSURE INCREASED
     Dosage: UNK
     Dates: end: 20100701
  4. HYZAAR [Concomitant]
     Indication: BLOOD PRESSURE INCREASED
     Dosage: UNK 50MG/25MG

REACTIONS (9)
  - CATARACT [None]
  - DACRYOSTENOSIS ACQUIRED [None]
  - DYSPNOEA [None]
  - EYE PRURITUS [None]
  - HYPERSENSITIVITY [None]
  - INTRAOCULAR PRESSURE INCREASED [None]
  - LACRIMATION INCREASED [None]
  - VISION BLURRED [None]
  - VISUAL IMPAIRMENT [None]
